FAERS Safety Report 8924952 (Version 1)
Quarter: 2012Q4

REPORT INFORMATION
  Report Type: Report from Study
  Country: SE (occurrence: SE)
  Receive Date: 20121126
  Receipt Date: 20121126
  Transmission Date: 20130627
  Serious: Yes (Hospitalization)
  Sender: FDA-Public Use
  Company Number: SE-SANOFI-AVENTIS-2012SA083078

PATIENT
  Age: 65 Year
  Sex: Male

DRUGS (9)
  1. GLIBENCLAMIDE [Suspect]
     Indication: TYPE 2 DIABETES MELLITUS
     Route: 048
     Dates: end: 20120812
  2. BLINDED THERAPY [Concomitant]
     Indication: TYPE 2 DIABETES MELLITUS
     Dates: start: 20101214
  3. METFORMIN HYDROCHLORIDE [Concomitant]
     Indication: TYPE 2 DIABETES MELLITUS
  4. ASPIRIN [Concomitant]
  5. BETA BLOCKING AGENTS [Concomitant]
  6. ANTITHROMBOTIC AGENTS [Concomitant]
  7. HMG COA REDUCTASE INHIBITORS [Concomitant]
  8. ACE INHIBITOR NOS [Concomitant]
  9. ORGANIC NITRATES [Concomitant]

REACTIONS (1)
  - Fall [Recovered/Resolved]
